FAERS Safety Report 4463070-0 (Version None)
Quarter: 2004Q3

REPORT INFORMATION
  Report Type: 
  Country: None (occurrence: None)
  Receive Date: 20040928
  Receipt Date: 20040920
  Transmission Date: 20050211
  Serious: Yes (Hospitalization)
  Sender: FDA-Public Use
  Company Number: 184304

PATIENT
  Age: 50 Year
  Sex: Female

DRUGS (1)
  1. AVONEX [Suspect]
     Indication: MULTIPLE SCLEROSIS
     Dates: start: 19981001

REACTIONS (11)
  - ABASIA [None]
  - ARTHROPATHY [None]
  - ASTHENIA [None]
  - BALANCE DISORDER [None]
  - FATIGUE [None]
  - INFLUENZA LIKE ILLNESS [None]
  - JOINT STIFFNESS [None]
  - MIGRAINE [None]
  - MONOPLEGIA [None]
  - MUSCULOSKELETAL STIFFNESS [None]
  - PYREXIA [None]
